FAERS Safety Report 22170354 (Version 1)
Quarter: 2023Q2

REPORT INFORMATION
  Report Type: Spontaneous
  Country: BE (occurrence: None)
  Receive Date: 20230404
  Receipt Date: 20230404
  Transmission Date: 20230722
  Serious: Yes (Other)
  Sender: FDA-Public Use
  Company Number: BE-AMGEN-BELSP2023047478

PATIENT
  Age: 61 Year
  Sex: Female

DRUGS (14)
  1. BEVACIZUMAB [Suspect]
     Active Substance: BEVACIZUMAB
     Indication: Colorectal cancer metastatic
     Route: 065
     Dates: start: 202202
  2. BEVACIZUMAB [Suspect]
     Active Substance: BEVACIZUMAB
     Dosage: UNK
     Route: 065
     Dates: start: 202108, end: 202204
  3. CETUXIMAB [Suspect]
     Active Substance: CETUXIMAB
     Indication: Product used for unknown indication
     Route: 065
     Dates: start: 202212, end: 202301
  4. OXALIPLATIN [Suspect]
     Active Substance: OXALIPLATIN
     Indication: Colorectal cancer metastatic
     Route: 065
     Dates: start: 201908
  5. TIPIRACIL [Suspect]
     Active Substance: TIPIRACIL
     Indication: Colorectal cancer metastatic
     Route: 065
     Dates: start: 202302
  6. AFLIBERCEPT [Suspect]
     Active Substance: AFLIBERCEPT
     Indication: Colorectal cancer metastatic
     Route: 065
     Dates: start: 202205, end: 202209
  7. LEUCOVORIN [Suspect]
     Active Substance: LEUCOVORIN
     Indication: Colorectal cancer metastatic
     Route: 065
     Dates: start: 201908
  8. FLUOROURACIL [Suspect]
     Active Substance: FLUOROURACIL
     Indication: Colorectal cancer metastatic
     Route: 065
     Dates: start: 201908
  9. LYMECYCLINE [Suspect]
     Active Substance: LYMECYCLINE
     Indication: Colorectal cancer metastatic
     Route: 065
     Dates: start: 201908
  10. IRINOTECAN HYDROCHLORIDE [Suspect]
     Active Substance: IRINOTECAN HYDROCHLORIDE
     Indication: Colorectal cancer metastatic
     Route: 065
     Dates: start: 202205, end: 202209
  11. TRIFLURIDINE [Suspect]
     Active Substance: TRIFLURIDINE
     Indication: Colorectal cancer metastatic
     Route: 065
     Dates: start: 202202
  12. VECTIBIX [Suspect]
     Active Substance: PANITUMUMAB
     Indication: Colorectal cancer metastatic
     Route: 065
     Dates: start: 201908
  13. PAROXETINE [Concomitant]
     Active Substance: PAROXETINE
     Indication: Product used for unknown indication
     Route: 065
  14. LEVOTHYROXINE [Concomitant]
     Active Substance: LEVOTHYROXINE
     Indication: Product used for unknown indication
     Route: 065

REACTIONS (11)
  - Skin fissures [Unknown]
  - Paronychia [Unknown]
  - Colorectal cancer metastatic [Unknown]
  - COVID-19 [Unknown]
  - Dry skin [Unknown]
  - Traumatic fracture [Unknown]
  - Dermatitis contact [Unknown]
  - Rash pustular [Unknown]
  - Dermatitis acneiform [Unknown]
  - Neuropathy peripheral [Unknown]
  - Therapeutic product effect incomplete [Unknown]

NARRATIVE: CASE EVENT DATE: 20191001
